FAERS Safety Report 5056787-0 (Version None)
Quarter: 2006Q2

REPORT INFORMATION
  Report Type: 
  Country: None (occurrence: None)
  Receive Date: 20060619
  Receipt Date: 20050628
  Transmission Date: 20061013
  Serious: Yes (Other)
  Sender: FDA-Public Use
  Company Number: US-2005-012493

PATIENT

DRUGS (3)
  1. CAMPATH [Suspect]
     Indication: CHRONIC LYMPHOCYTIC LEUKAEMIA
  2. FLUDARA [Suspect]
     Indication: CHRONIC LYMPHOCYTIC LEUKAEMIA
  3. RITUXIMAB (RITUXIMAB) [Suspect]
     Indication: CHRONIC LYMPHOCYTIC LEUKAEMIA

REACTIONS (1)
  - HAEMATOLOGY TEST ABNORMAL [None]
